FAERS Safety Report 6877760-3 (Version None)
Quarter: 2010Q3

REPORT INFORMATION
  Report Type: 
  Country: None (occurrence: None)
  Receive Date: 20100727
  Receipt Date: 20100720
  Transmission Date: 20110219
  Serious: No
  Sender: FDA-Public Use
  Company Number: US-ABBOTT-10P-163-0658451-00

PATIENT
  Sex: Female

DRUGS (3)
  1. SYNTHROID [Suspect]
     Indication: HYPOTHYROIDISM
     Dates: start: 20100201, end: 20100501
  2. SYNTHROID [Suspect]
     Dates: start: 20100501, end: 20100719
  3. SYNTHROID [Suspect]
     Dates: start: 20100719

REACTIONS (2)
  - ALOPECIA [None]
  - FATIGUE [None]
